FAERS Safety Report 7633357-9 (Version None)
Quarter: 2011Q3

REPORT INFORMATION
  Report Type: 
  Country: None (occurrence: None)
  Receive Date: 20110725
  Receipt Date: 20100922
  Transmission Date: 20111222
  Serious: No
  Sender: FDA-Public Use
  Company Number: US-BRISTOL-MYERS SQUIBB COMPANY-15294291

PATIENT
  Sex: Male

DRUGS (1)
  1. SPRYCEL [Suspect]
     Route: 048
     Dates: start: 20100901

REACTIONS (2)
  - DIARRHOEA [None]
  - HEART RATE INCREASED [None]
